FAERS Safety Report 10270250 (Version 1)
Quarter: 2014Q3

REPORT INFORMATION
  Report Type: Spontaneous
  Country: JP (occurrence: JP)
  Receive Date: 20140701
  Receipt Date: 20140701
  Transmission Date: 20150326
  Serious: Yes (Hospitalization)
  Sender: FDA-Public Use
  Company Number: JP-MYLANLABS-2014S1015103

PATIENT
  Age: 77 Year
  Sex: Male
  Weight: 64 kg

DRUGS (6)
  1. GLIMEPIRIDE. [Suspect]
     Active Substance: GLIMEPIRIDE
     Dosage: 6MG
     Route: 048
  2. SENNA [Concomitant]
     Active Substance: SENNA LEAF\SENNOSIDES\SENNOSIDES A AND B
     Dosage: SENNOSIDES
     Route: 048
  3. TRIAZOLAM. [Concomitant]
     Active Substance: TRIAZOLAM
     Route: 048
  4. DONEPEZIL [Concomitant]
     Active Substance: DONEPEZIL
     Route: 048
  5. ASPIRIN. [Concomitant]
     Active Substance: ASPIRIN
     Route: 048
  6. ETIZOLAM [Concomitant]
     Active Substance: ETIZOLAM
     Route: 048

REACTIONS (2)
  - Wrong drug administered [Recovered/Resolved]
  - Hypoglycaemia [Recovered/Resolved]
